FAERS Safety Report 5883728-6 (Version None)
Quarter: 2008Q3

REPORT INFORMATION
  Report Type: 
  Country: None (occurrence: None)
  Receive Date: 20080912
  Receipt Date: 20080912
  Transmission Date: 20090109
  Serious: Yes (Other)
  Sender: FDA-Public Use
  Company Number: None

PATIENT
  Age: 85 Year
  Sex: Female
  Weight: 70.7611 kg

DRUGS (1)
  1. HALOPERIDOL [Suspect]
     Indication: AGITATION
     Dosage: 2.5 MG IV BOLUS, 2 DOSES
     Route: 040
     Dates: start: 20080617, end: 20080617

REACTIONS (1)
  - ELECTROCARDIOGRAM QT PROLONGED [None]
